FAERS Safety Report 6488818-5 (Version None)
Quarter: 2009Q4

REPORT INFORMATION
  Report Type: 
  Country: None (occurrence: None)
  Receive Date: 20091210
  Receipt Date: 20091201
  Transmission Date: 20100525
  Serious: Yes (Life-Threatening)
  Sender: FDA-Public Use
  Company Number: GB-PFIZER INC-2008041802

PATIENT
  Age: 70 Year
  Sex: Female
  Weight: 65 kg

DRUGS (6)
  1. SPIRONOLACTONE [Suspect]
     Indication: LEFT VENTRICULAR FAILURE
     Route: 048
     Dates: start: 20040101, end: 20080401
  2. BISOPROLOL [Concomitant]
  3. DIGOXIN [Concomitant]
  4. FRUSEMIDE [Concomitant]
  5. RAMIPRIL [Concomitant]
  6. WARFARIN SODIUM [Concomitant]

REACTIONS (1)
  - BILE DUCT CANCER [None]
